FAERS Safety Report 4362640-8 (Version None)
Quarter: 2004Q2

REPORT INFORMATION
  Report Type: 
  Country: None (occurrence: None)
  Receive Date: 20040524
  Receipt Date: 20040514
  Transmission Date: 20050107
  Serious: Yes (Hospitalization)
  Sender: FDA-Public Use
  Company Number: PHNU2004DE01828

PATIENT
  Age: 73 Year
  Sex: Female
  Weight: 78 kg

DRUGS (9)
  1. FORADIL [Suspect]
     Dosage: 2 PUFFS DAILY
     Dates: start: 19990101
  2. FORADIL [Suspect]
     Dosage: DOSAGE INCREASED
     Dates: start: 20031018
  3. BRONCHORETARD [Suspect]
     Dosage: 350 MG, BID
     Route: 048
     Dates: start: 19990101
  4. ASS ^STADA^ [Concomitant]
     Dosage: 100 MG/DAY
  5. FALICARD ^ASTA MEDICA^ [Concomitant]
     Indication: HYPERTENSION
     Dosage: 80 MG, BID
     Route: 048
  6. L-THYROXIN ^HENNING BERLIN^ [Concomitant]
     Indication: HYPOTHYROIDISM
     Dosage: 25 MG/DAY
     Route: 048
     Dates: start: 19970101
  7. PANTOZOL [Concomitant]
     Dosage: 40 MG/DAY
     Route: 048
  8. PULMICORT [Concomitant]
     Indication: ASTHMA
     Dosage: 2 DF, TID
     Dates: start: 19990101
  9. XANEF [Concomitant]
     Indication: HYPERTENSION
     Dosage: 5 MG, BID
     Route: 048
     Dates: start: 20000101

REACTIONS (14)
  - AORTIC VALVE INCOMPETENCE [None]
  - ASTHMA [None]
  - BLOOD PRESSURE INCREASED [None]
  - COR PULMONALE CHRONIC [None]
  - DILATATION VENTRICULAR [None]
  - DRUG INTERACTION [None]
  - DYSPNOEA [None]
  - ECHOCARDIOGRAM ABNORMAL [None]
  - HEART RATE INCREASED [None]
  - SINUS TACHYCARDIA [None]
  - TACHYCARDIA [None]
  - TRICUSPID VALVE INCOMPETENCE [None]
  - VENTRICULAR DYSFUNCTION [None]
  - VENTRICULAR HYPERTROPHY [None]
